FAERS Safety Report 13035469 (Version 1)
Quarter: 2016Q4

REPORT INFORMATION
  Report Type: Report from Study
  Country: AU (occurrence: AU)
  Receive Date: 20161216
  Receipt Date: 20161216
  Transmission Date: 20170207
  Serious: Yes (Death, Hospitalization)
  Sender: FDA-Public Use
  Company Number: PHHY2016AU172395

PATIENT
  Age: 89 Year
  Sex: Male

DRUGS (1)
  1. SANDOSTATIN LAR DEPOT [Suspect]
     Active Substance: OCTREOTIDE ACETATE
     Indication: NEUROENDOCRINE TUMOUR
     Dosage: 10 MG, UNK
     Route: 030

REACTIONS (6)
  - Depressed level of consciousness [Fatal]
  - Confusional state [Fatal]
  - Fall [Unknown]
  - Subdural haemorrhage [Fatal]
  - Mental disorder [Fatal]
  - Delirium [Fatal]

NARRATIVE: CASE EVENT DATE: 20161128
